FAERS Safety Report 9551918 (Version 5)
Quarter: 2014Q2

REPORT INFORMATION
  Report Type: Spontaneous
  Country: CA (occurrence: CA)
  Receive Date: 20130925
  Receipt Date: 20140415
  Transmission Date: 20141212
  Serious: Yes (Hospitalization)
  Sender: FDA-Public Use
  Company Number: CA-JNJFOC-20130913191

PATIENT
  Age: 63 Year
  Sex: Female

DRUGS (2)
  1. RISPERIDONE [Suspect]
     Indication: ANXIETY
     Route: 065
  2. LORAZEPAM [Suspect]
     Indication: ANXIETY
     Route: 065

REACTIONS (3)
  - Respiratory depression [Recovered/Resolved]
  - Chronic obstructive pulmonary disease [Recovered/Resolved]
  - Hypercapnia [Recovered/Resolved]
